FAERS Safety Report 14655980 (Version 1)
Quarter: 2018Q1

REPORT INFORMATION
  Report Type: Spontaneous
  Country: US (occurrence: US)
  Receive Date: 20180319
  Receipt Date: 20180319
  Transmission Date: 20180509
  Serious: Yes (Hospitalization, Other)
  Sender: FDA-Public Use
  Company Number: US-AKRON, INC.-2044079

PATIENT
  Age: 84 Year
  Sex: Female

DRUGS (1)
  1. AK-FLUOR [Suspect]
     Active Substance: FLUORESCEIN SODIUM
     Indication: DIAGNOSTIC PROCEDURE
     Route: 042

REACTIONS (3)
  - Dyspnoea [Recovered/Resolved]
  - Hospitalisation [Recovered/Resolved]
  - Chest discomfort [Recovered/Resolved]
